FAERS Safety Report 9831753 (Version 3)
Quarter: 2015Q2

REPORT INFORMATION
  Report Type: Spontaneous
  Country: US (occurrence: US)
  Receive Date: 20140121
  Receipt Date: 20150422
  Transmission Date: 20150821
  Serious: No
  Sender: FDA-Public Use
  Company Number: US-PFIZER INC-2014012427

PATIENT
  Sex: Male

DRUGS (3)
  1. IODINE [Suspect]
     Active Substance: IODINE
  2. CODEINE [Suspect]
     Active Substance: CODEINE
     Indication: PAIN
     Dosage: UNK
     Dates: start: 1970
  3. IOVERSOL [Suspect]
     Active Substance: IOVERSOL

REACTIONS (1)
  - Drug hypersensitivity [Unknown]
